FAERS Safety Report 14773412 (Version 2)
Quarter: 2018Q2

REPORT INFORMATION
  Report Type: Spontaneous
  Country: JP (occurrence: JP)
  Receive Date: 20180418
  Receipt Date: 20180418
  Transmission Date: 20180711
  Serious: Yes (Other)
  Sender: FDA-Public Use
  Company Number: PHHY2018JP061291

PATIENT
  Age: 18 Year
  Sex: Female

DRUGS (13)
  1. CARBAMAZEPINE. [Suspect]
     Active Substance: CARBAMAZEPINE
     Indication: STATUS EPILEPTICUS
     Dosage: 200 MG, QD
     Route: 065
  2. MIDAZOLAM [Concomitant]
     Active Substance: MIDAZOLAM HYDROCHLORIDE
     Indication: GENERAL ANAESTHESIA
     Route: 042
  3. STIRIPENTOL [Suspect]
     Active Substance: STIRIPENTOL
     Dosage: 2500 MG, QD
     Route: 065
  4. METHYLPREDNISOLONE. [Concomitant]
     Active Substance: METHYLPREDNISOLONE
     Indication: IMMUNOSUPPRESSANT DRUG THERAPY
     Route: 042
  5. VALPROIC ACID. [Suspect]
     Active Substance: VALPROIC ACID
     Indication: STATUS EPILEPTICUS
     Dosage: 600 MG, QD
     Route: 065
  6. PHENYTOIN. [Suspect]
     Active Substance: PHENYTOIN
     Indication: STATUS EPILEPTICUS
     Dosage: 300 MG, QD
     Route: 065
  7. TOPIRAMATE. [Suspect]
     Active Substance: TOPIRAMATE
     Indication: STATUS EPILEPTICUS
     Dosage: 600 MG, QD
     Route: 065
  8. LEVETIRACETAM. [Suspect]
     Active Substance: LEVETIRACETAM
     Indication: STATUS EPILEPTICUS
     Dosage: 2000 MG, QD
     Route: 065
  9. GABAPENTIN. [Suspect]
     Active Substance: GABAPENTIN
     Indication: STATUS EPILEPTICUS
     Dosage: 1200 MG, QD
     Route: 065
  10. PHENOBARBITAL. [Suspect]
     Active Substance: PHENOBARBITAL
     Indication: STATUS EPILEPTICUS
     Dosage: 150 MG, QD
     Route: 065
  11. PROPOFOL. [Concomitant]
     Active Substance: PROPOFOL
     Indication: GENERAL ANAESTHESIA
     Route: 042
  12. STIRIPENTOL [Suspect]
     Active Substance: STIRIPENTOL
     Indication: STATUS EPILEPTICUS
     Dosage: 500 MG, QD
     Route: 065
  13. CLOBAZAM [Suspect]
     Active Substance: CLOBAZAM
     Indication: STATUS EPILEPTICUS
     Dosage: 200 MG, QD
     Route: 065

REACTIONS (5)
  - Hepatitis [Unknown]
  - Pyrexia [Unknown]
  - Treatment failure [Unknown]
  - Upper respiratory tract infection [Unknown]
  - Erythema multiforme [Unknown]
